FAERS Safety Report 7627264-5 (Version None)
Quarter: 2011Q3

REPORT INFORMATION
  Report Type: 
  Country: None (occurrence: None)
  Receive Date: 20110714
  Receipt Date: 20110628
  Transmission Date: 20111222
  Serious: Yes (Hospitalization)
  Sender: FDA-Public Use
  Company Number: PTU-11-08

PATIENT
  Age: 34 Year
  Sex: Female

DRUGS (3)
  1. PROPYLTHIOURACIL [Suspect]
     Indication: HYPERTHYROIDISM
  2. PROPRANOLOL [Concomitant]
  3. METHIMAZOLE [Concomitant]

REACTIONS (11)
  - JAUNDICE [None]
  - OCULAR ICTERUS [None]
  - HEPATOMEGALY [None]
  - DECREASED APPETITE [None]
  - DIZZINESS [None]
  - RASH PAPULAR [None]
  - FAECES PALE [None]
  - HEPATIC FAILURE [None]
  - CHROMATURIA [None]
  - HEPATIC PAIN [None]
  - TRANSAMINASES ABNORMAL [None]
